FAERS Safety Report 8177850-1 (Version None)
Quarter: 2012Q1

REPORT INFORMATION
  Report Type: 
  Country: None (occurrence: None)
  Receive Date: 20120301
  Receipt Date: 20091015
  Transmission Date: 20120608
  Serious: Yes (Hospitalization, Other)
  Sender: FDA-Public Use
  Company Number: FR-ROCHE-1041503

PATIENT
  Sex: Male

DRUGS (17)
  1. FUNGIZONE [Concomitant]
     Indication: ANTIFUNGAL PROPHYLAXIS
  2. MYCOPHENOLATE MOFETIL (CELLCEPT) [Concomitant]
     Indication: KIDNEY TRANSPLANT REJECTION
     Dates: start: 20090516
  3. LASIX [Concomitant]
     Indication: RENAL FAILURE
     Dates: start: 20090517
  4. EPREX [Concomitant]
     Indication: ANAEMIA
     Dates: start: 20090609
  5. ALPHACALCIDOL [Concomitant]
     Dates: start: 20090517
  6. ZANTAC [Concomitant]
     Indication: PROPHYLAXIS AGAINST GASTROINTESTINAL ULCER
     Dates: start: 20090317
  7. GELOX [Concomitant]
     Indication: PROPHYLAXIS AGAINST GASTROINTESTINAL ULCER
     Dates: start: 20090517
  8. BACTRIM [Concomitant]
     Indication: ANTIFUNGAL PROPHYLAXIS
     Dates: start: 20090517
  9. AMPHOTERICIN B [Concomitant]
     Dosage: LIQUID
     Route: 048
     Dates: start: 20090517
  10. OFLOXACIN [Concomitant]
     Indication: URINARY TRACT INFECTION
     Dates: start: 20090518, end: 20090610
  11. ACEBUTOLOL [Concomitant]
     Dates: start: 20090517, end: 20090618
  12. RENAGEL [Concomitant]
     Dates: start: 20090523
  13. PROGRAF [Concomitant]
     Indication: KIDNEY TRANSPLANT REJECTION
     Dates: start: 20090610
  14. PREDNISONE TAB [Concomitant]
     Indication: KIDNEY TRANSPLANT REJECTION
     Dates: start: 20090528, end: 20090610
  15. SOLU-MEDROL [Concomitant]
     Indication: TRANSPLANT REJECTION
     Dates: start: 20090610, end: 20090611
  16. FORLAX (FRANCE) [Concomitant]
     Dates: start: 20090517, end: 20090527
  17. MABTHERA [Suspect]
     Indication: RENAL TRANSPLANT
     Route: 042

REACTIONS (7)
  - HAEMORRHAGE [None]
  - COAGULOPATHY [None]
  - ABDOMINAL WALL HAEMORRHAGE [None]
  - THROMBOCYTOPENIA [None]
  - SHOCK HAEMORRHAGIC [None]
  - TRANSPLANT REJECTION [None]
  - ABDOMINAL WALL HAEMATOMA [None]
